FAERS Safety Report 6361503-6 (Version None)
Quarter: 2009Q3

REPORT INFORMATION
  Report Type: 
  Country: None (occurrence: None)
  Receive Date: 20090918
  Receipt Date: 20090914
  Transmission Date: 20100115
  Serious: Yes (Other)
  Sender: FDA-Public Use
  Company Number: JP-AVENTIS-200912441JP

PATIENT
  Age: 61 Year
  Sex: Female
  Weight: 50.2 kg

DRUGS (8)
  1. ALLEGRA [Suspect]
     Indication: RHINITIS ALLERGIC
     Route: 048
     Dates: start: 20090630, end: 20090804
  2. LIVALO [Suspect]
     Route: 048
     Dates: start: 20090706, end: 20090804
  3. LIVALO [Suspect]
     Route: 048
     Dates: start: 20090706, end: 20090804
  4. MUCODYNE [Concomitant]
     Indication: BRONCHITIS CHRONIC
     Route: 048
     Dates: start: 20090630, end: 20090706
  5. MUCODYNE [Concomitant]
     Route: 048
     Dates: start: 20090706, end: 20090803
  6. MUCODYNE [Concomitant]
     Indication: RHINITIS ALLERGIC
     Route: 048
     Dates: start: 20090630, end: 20090706
  7. MUCODYNE [Concomitant]
     Route: 048
     Dates: start: 20090706, end: 20090803
  8. HUSTAZOL [Concomitant]
     Indication: BRONCHITIS CHRONIC
     Route: 048
     Dates: start: 20090706, end: 20090803

REACTIONS (1)
  - LIVER DISORDER [None]
